FAERS Safety Report 8456806-5 (Version None)
Quarter: 2012Q2

REPORT INFORMATION
  Report Type: 
  Country: None (occurrence: None)
  Receive Date: 20120621
  Receipt Date: 20120615
  Transmission Date: 20120825
  Serious: Yes (Other)
  Sender: FDA-Public Use
  Company Number: JP-BAYER-2012-059748

PATIENT
  Age: 33 Year
  Sex: Female

DRUGS (2)
  1. ETHINYLESTRADIOL W/NORETHISTERONE ACETATE [Concomitant]
     Indication: DYSMENORRHOEA
     Dosage: UNK
     Route: 048
  2. YAZ [Suspect]
     Indication: DYSMENORRHOEA
     Dosage: 1 DF, QD
     Route: 048
     Dates: start: 20120611, end: 20120612

REACTIONS (1)
  - TOXIC SKIN ERUPTION [None]
